FAERS Safety Report 6078996-4 (Version None)
Quarter: 2009Q1

REPORT INFORMATION
  Report Type: 
  Country: None (occurrence: None)
  Receive Date: 20090216
  Receipt Date: 20090209
  Transmission Date: 20090719
  Serious: Yes (Hospitalization, Other)
  Sender: FDA-Public Use
  Company Number: US-ELI_LILLY_AND_COMPANY-US200901003326

PATIENT
  Sex: Female
  Weight: 78.458 kg

DRUGS (7)
  1. BYETTA [Suspect]
     Indication: TYPE 1 DIABETES MELLITUS
     Dosage: 5 UG, 2/D
     Route: 058
     Dates: start: 20090115, end: 20090119
  2. HUMALOG [Concomitant]
     Indication: TYPE 1 DIABETES MELLITUS
     Dosage: 7 U, 3/D
     Dates: start: 20081218
  3. METFORMIN HCL [Concomitant]
     Indication: DIABETES MELLITUS
     Dosage: 500 MG, 2/D
     Route: 048
     Dates: start: 20081229
  4. LANTUS [Concomitant]
     Indication: TYPE 1 DIABETES MELLITUS
     Dosage: 20 U, EACH EVENING
     Dates: start: 20081218
  5. LANTUS [Concomitant]
     Dosage: 24 U, UNK
     Route: 058
  6. NASACORT AQ [Concomitant]
     Indication: RHINITIS ALLERGIC
     Dates: start: 20090115
  7. CLARITIN [Concomitant]
     Indication: RHINITIS ALLERGIC
     Dosage: 10 MG, DAILY (1/D)
     Route: 048
     Dates: start: 20090115

REACTIONS (3)
  - CHOLELITHIASIS [None]
  - PANCREATITIS ACUTE [None]
  - WEIGHT DECREASED [None]
